FAERS Safety Report 6708983-1 (Version None)
Quarter: 2010Q2

REPORT INFORMATION
  Report Type: 
  Country: None (occurrence: None)
  Receive Date: 20100504
  Receipt Date: 20100428
  Transmission Date: 20101027
  Serious: Yes (Death, Life-Threatening)
  Sender: FDA-Public Use
  Company Number: PHHY2009JP20211

PATIENT
  Sex: Male
  Weight: 46 kg

DRUGS (14)
  1. ICL670A ICL+DISTAB [Suspect]
     Indication: IRON OVERLOAD
     Dosage: 875 MG DAILY
     Route: 048
     Dates: start: 20080711, end: 20090513
  2. ICL670A ICL+DISTAB [Suspect]
     Indication: APLASTIC ANAEMIA
  3. NEORAL [Suspect]
     Indication: APLASTIC ANAEMIA
     Dosage: 150 MG DAILY
     Route: 048
     Dates: start: 20081114, end: 20090513
  4. DESFERAL [Concomitant]
     Indication: IRON OVERLOAD
     Dosage: 500 MG
     Route: 042
     Dates: start: 20071225, end: 20081127
  5. ZEFFIX [Concomitant]
     Dosage: 100 MG, UNK
     Route: 048
     Dates: start: 20090101, end: 20090513
  6. HEPSERA [Concomitant]
     Dosage: 10 MG, UNK
     Route: 048
     Dates: start: 20090101, end: 20090513
  7. COTRIM [Concomitant]
     Indication: APLASTIC ANAEMIA
     Dosage: 1 G, UNK
     Route: 048
     Dates: start: 20090101, end: 20090513
  8. TRANCOLON [Concomitant]
     Indication: IRRITABLE BOWEL SYNDROME
     Dosage: 7.5 MG, UNK
     Route: 048
     Dates: start: 20090101, end: 20090513
  9. MIYA-BM [Concomitant]
     Indication: IRRITABLE BOWEL SYNDROME
     Dosage: 3 G, UNK
     Route: 048
     Dates: start: 20090101, end: 20090513
  10. ITRIZOLE [Concomitant]
     Indication: APLASTIC ANAEMIA
     Dosage: 200 MG, UNK
     Route: 048
     Dates: start: 20090101, end: 20090513
  11. OZEX [Concomitant]
     Indication: APLASTIC ANAEMIA
     Dosage: 450 MG, UNK
     Route: 048
     Dates: start: 20090101, end: 20090513
  12. MYSLEE [Concomitant]
     Indication: INSOMNIA
     Dosage: 5 MG, UNK
     Route: 048
     Dates: start: 20090101, end: 20090513
  13. LASIX [Concomitant]
     Indication: OEDEMA
     Dosage: 80 MG, UNK
     Route: 048
     Dates: start: 20090101, end: 20090513
  14. RED BLOOD CELLS [Concomitant]
     Dosage: UNK
     Dates: start: 20090221

REACTIONS (4)
  - HEPATIC FUNCTION ABNORMAL [None]
  - NEUTROPHIL COUNT DECREASED [None]
  - PNEUMONIA [None]
  - RENAL IMPAIRMENT [None]
